FAERS Safety Report 24717759 (Version 3)
Quarter: 2025Q1

REPORT INFORMATION
  Report Type: Other
  Country: US (occurrence: US)
  Receive Date: 20241210
  Receipt Date: 20250118
  Transmission Date: 20250409
  Serious: Yes (Hospitalization, Other)
  Sender: TRAVERE THERAPEUTICS
  Company Number: US-TRAVERE-2024TVT01257

PATIENT
  Age: 63 Year
  Sex: Male

DRUGS (22)
  1. FILSPARI [Suspect]
     Active Substance: SPARSENTAN
     Indication: IgA nephropathy
     Route: 048
     Dates: start: 20240711
  2. FILSPARI [Suspect]
     Active Substance: SPARSENTAN
     Route: 048
     Dates: start: 20240809
  3. LIPITOR [Concomitant]
     Active Substance: ATORVASTATIN CALCIUM
  4. VITAMIN D3 [Concomitant]
     Active Substance: CHOLECALCIFEROL
  5. ADDERALL [Concomitant]
     Active Substance: AMPHETAMINE ASPARTATE\AMPHETAMINE SULFATE\DEXTROAMPHETAMINE SACCHARATE\DEXTROAMPHETAMINE SULFATE
  6. BENADRYL [Concomitant]
     Active Substance: DIPHENHYDRAMINE HYDROCHLORIDE
  7. JARDIANCE [Concomitant]
     Active Substance: EMPAGLIFLOZIN
  8. IRON [Concomitant]
     Active Substance: IRON
  9. ROBAXIN [Concomitant]
     Active Substance: METHOCARBAMOL
  10. BACTROBAN [Concomitant]
     Active Substance: MUPIROCIN CALCIUM
  11. AKYNZEO [Concomitant]
  12. JAKAFI [Concomitant]
     Active Substance: RUXOLITINIB
  13. ZYLOPRIM [Concomitant]
     Active Substance: ALLOPURINOL
  14. PACERONE [Concomitant]
     Active Substance: AMIODARONE HYDROCHLORIDE
  15. APRESOLINE HYDROCHLORIDE [Concomitant]
     Active Substance: HYDRALAZINE HYDROCHLORIDE
  16. HYDREA [Concomitant]
     Active Substance: HYDROXYUREA
  17. ISORDIL [Concomitant]
     Active Substance: ISOSORBIDE DINITRATE
  18. NORMODYNE [Concomitant]
     Active Substance: LABETALOL HYDROCHLORIDE
  19. MOMELOTINIB [Concomitant]
     Active Substance: MOMELOTINIB
  20. Procardia-XL [Concomitant]
  21. PROTONIX [Concomitant]
     Active Substance: PANTOPRAZOLE SODIUM
  22. DELTASONE [Concomitant]
     Active Substance: PREDNISONE

REACTIONS (8)
  - Cholecystitis [Recovered/Resolved]
  - Hypertensive crisis [Recovered/Resolved]
  - Atrial fibrillation [Unknown]
  - Blood alkaline phosphatase increased [Unknown]
  - Atrial flutter [Unknown]
  - Dizziness postural [Unknown]
  - Dyspnoea exertional [Unknown]
  - Periorbital oedema [Unknown]

NARRATIVE: CASE EVENT DATE: 20241103
